FAERS Safety Report 13268814 (Version 1)
Quarter: 2017Q1

REPORT INFORMATION
  Report Type: Spontaneous
  Country: US (occurrence: US)
  Receive Date: 20170224
  Receipt Date: 20170224
  Transmission Date: 20170428
  Serious: Yes (Other)
  Sender: FDA-Public Use
  Company Number: US-BAYER-2017-033247

PATIENT
  Age: 33 Year
  Sex: Female

DRUGS (1)
  1. MIRENA [Suspect]
     Active Substance: LEVONORGESTREL
     Indication: CONTRACEPTION
     Dosage: 20 MCG/24HR, CONT
     Route: 015
     Dates: start: 20170103

REACTIONS (10)
  - Medical device monitoring error [None]
  - Uterine perforation [Not Recovered/Not Resolved]
  - Procedural pain [Not Recovered/Not Resolved]
  - Vaginal odour [None]
  - Device issue [Not Recovered/Not Resolved]
  - Abdominal pain lower [None]
  - Abdominal pain [Not Recovered/Not Resolved]
  - Device difficult to use [Not Recovered/Not Resolved]
  - Vaginitis bacterial [None]
  - Contraindicated device used [None]

NARRATIVE: CASE EVENT DATE: 20170216
